FAERS Safety Report 5267179-3 (Version None)
Quarter: 2007Q1

REPORT INFORMATION
  Report Type: 
  Country: None (occurrence: None)
  Receive Date: 20070316
  Receipt Date: 20070313
  Transmission Date: 20070707
  Serious: Yes (Hospitalization)
  Sender: FDA-Public Use
  Company Number: FR-BRACCO-BRO-011533

PATIENT
  Age: 78 Year
  Sex: Male

DRUGS (20)
  1. MULTIHANCE [Suspect]
     Route: 042
     Dates: start: 20070122, end: 20070122
  2. RIVOTRIL [Suspect]
     Indication: DRUG USE FOR UNKNOWN INDICATION
     Route: 048
     Dates: start: 20070117, end: 20070122
  3. ATHYMIL [Suspect]
     Indication: DRUG USE FOR UNKNOWN INDICATION
     Route: 048
     Dates: start: 20070119, end: 20070122
  4. XATRAL                             /00975302/ [Suspect]
     Indication: DRUG USE FOR UNKNOWN INDICATION
     Route: 048
     Dates: start: 20070119, end: 20070124
  5. PAROXETINE HCL [Suspect]
     Indication: DRUG USE FOR UNKNOWN INDICATION
     Route: 048
     Dates: start: 20070118, end: 20070122
  6. SKENAN [Suspect]
     Indication: DRUG USE FOR UNKNOWN INDICATION
     Route: 048
     Dates: start: 20070117, end: 20070123
  7. INIPOMP [Concomitant]
     Route: 050
  8. BUFLOMEDIL [Concomitant]
     Route: 050
  9. QUINAPRIL HYDROCHLORIDE AND HYDROCHLOROTHIAZDE [Concomitant]
     Route: 050
  10. MONO-TILDIEM [Concomitant]
     Route: 050
  11. CO-APROVEL [Concomitant]
     Route: 050
  12. CRESTOR [Concomitant]
     Route: 050
  13. TOPALGIC                           /00599202/ [Concomitant]
     Route: 050
  14. ACETAMINOPHEN AND TRAMADOL HCL [Concomitant]
     Route: 050
  15. KETOPROFEN [Concomitant]
     Route: 050
  16. MINISINTROM [Concomitant]
     Route: 050
  17. RILMENIDINE [Concomitant]
     Route: 050
  18. PROZAC [Concomitant]
     Route: 050
  19. FORLAX [Concomitant]
     Route: 050
  20. SPASFON [Concomitant]
     Route: 050

REACTIONS (1)
  - RENAL FAILURE ACUTE [None]
